FAERS Safety Report 6814699-3 (Version None)
Quarter: 2010Q3

REPORT INFORMATION
  Report Type: 
  Country: None (occurrence: None)
  Receive Date: 20100701
  Receipt Date: 20100701
  Transmission Date: 20110219
  Serious: No
  Sender: FDA-Public Use
  Company Number: None

PATIENT
  Age: 63 Year
  Sex: Male
  Weight: 83.9154 kg

DRUGS (2)
  1. LEVAQUIN [Suspect]
     Indication: SINUSITIS
     Dosage: 750 MG ONCE/DAY ORAL
     Route: 048
     Dates: start: 20100601
  2. LEVAQUIN [Suspect]
     Indication: SINUSITIS
     Dosage: 750 MG ONCE/DAY ORAL
     Route: 048
     Dates: start: 20100603

REACTIONS (1)
  - TENDON PAIN [None]
